FAERS Safety Report 6151639-7 (Version None)
Quarter: 2009Q2

REPORT INFORMATION
  Report Type: 
  Country: None (occurrence: None)
  Receive Date: 20090410
  Receipt Date: 20090410
  Transmission Date: 20091009
  Serious: Yes (Other)
  Sender: FDA-Public Use
  Company Number: US-PFIZER INC-2008086750

PATIENT
  Sex: Male
  Weight: 68.181 kg

DRUGS (3)
  1. CHANTIX [Suspect]
     Route: 048
  2. RISPERDAL [Concomitant]
  3. ZOLOFT [Concomitant]

REACTIONS (4)
  - HOMICIDAL IDEATION [None]
  - STRESS [None]
  - SUICIDAL IDEATION [None]
  - VISION BLURRED [None]
